FAERS Safety Report 9138294 (Version 1)
Quarter: 2013Q1

REPORT INFORMATION
  Report Type: Spontaneous
  Country: BE (occurrence: BE)
  Receive Date: 20130305
  Receipt Date: 20130305
  Transmission Date: 20140127
  Serious: Yes (Hospitalization, Other)
  Sender: FDA-Public Use
  Company Number: BE-SP-2013-03476

PATIENT
  Age: 75 Year
  Sex: Male

DRUGS (1)
  1. BCG  THERAPEUTICS [Suspect]
     Indication: BLADDER CANCER
     Dosage: ^SIX WEEKLY IRRIGATIONS, FOLLOWED BY SIX^ MONTHLY IRRIGATIONS
     Route: 043

REACTIONS (6)
  - Bovine tuberculosis [Unknown]
  - Mycotic aneurysm [Unknown]
  - Inflammation [Unknown]
  - Abscess [Unknown]
  - Joint destruction [Unknown]
  - Pain [Unknown]
